FAERS Safety Report 5858815-9 (Version None)
Quarter: 2008Q3

REPORT INFORMATION
  Report Type: 
  Country: None (occurrence: None)
  Receive Date: 20080825
  Receipt Date: 20070207
  Transmission Date: 20090109
  Serious: Yes (Other)
  Sender: FDA-Public Use
  Company Number: PAR_1363_2007

PATIENT
  Sex: Female

DRUGS (1)
  1. MEGESTROL ACETATE [Suspect]
     Dosage: ORAL
     Route: 048
     Dates: end: 20050101

REACTIONS (1)
  - DEEP VEIN THROMBOSIS [None]
